FAERS Safety Report 24830774 (Version 1)
Quarter: 2025Q1

REPORT INFORMATION
  Report Type: Spontaneous
  Country: NL (occurrence: NL)
  Receive Date: 20250110
  Receipt Date: 20250110
  Transmission Date: 20250409
  Serious: Yes (Other)
  Sender: RANBAXY
  Company Number: NL-SUN PHARMACEUTICAL INDUSTRIES LTD-2024R1-488593

PATIENT
  Age: 70 Year
  Sex: Male

DRUGS (2)
  1. METHYLPREDNISOLONE [Suspect]
     Active Substance: METHYLPREDNISOLONE
     Indication: Lung disorder
     Route: 065
  2. HYDROXYCHLOROQUINE [Suspect]
     Active Substance: HYDROXYCHLOROQUINE
     Indication: Lung disorder
     Dosage: 200 MILLIGRAM, BID
     Route: 065

REACTIONS (1)
  - Therapy non-responder [Unknown]
